FAERS Safety Report 23407265 (Version 1)
Quarter: 2024Q1

REPORT INFORMATION
  Report Type: Spontaneous
  Country: US (occurrence: US)
  Receive Date: 20240116
  Receipt Date: 20240116
  Transmission Date: 20240410
  Serious: No
  Sender: FDA-Public Use
  Company Number: US-NOVOPROD-1125490

PATIENT
  Age: 39 Year
  Sex: Female

DRUGS (2)
  1. SEMAGLUTIDE [Suspect]
     Active Substance: SEMAGLUTIDE
     Indication: Weight control
  2. SEMAGLUTIDE [Suspect]
     Active Substance: SEMAGLUTIDE
     Indication: Polycystic ovarian syndrome
     Dosage: 40 MG, QW
     Route: 058
     Dates: start: 20230707

REACTIONS (3)
  - Allodynia [Not Recovered/Not Resolved]
  - Pruritus [Unknown]
  - Chills [Unknown]

NARRATIVE: CASE EVENT DATE: 20230728
